FAERS Safety Report 4880748-5 (Version None)
Quarter: 2006Q1

REPORT INFORMATION
  Report Type: 
  Country: None (occurrence: None)
  Receive Date: 20060111
  Receipt Date: 20051020
  Transmission Date: 20060701
  Serious: No
  Sender: FDA-Public Use
  Company Number: 2005S1000229

PATIENT
  Age: 52 Year

DRUGS (4)
  1. CUBICIN [Suspect]
     Indication: ENDOCARDITIS
     Dosage: 6 MG/KG; Q48H; IV
     Route: 042
     Dates: start: 20050101, end: 20050101
  2. HEPARIN [Concomitant]
  3. VANCOMYCIN [Concomitant]
  4. CALCIUM CHANNEL BLOCKER [Concomitant]

REACTIONS (2)
  - INTERNATIONAL NORMALISED RATIO INCREASED [None]
  - PROTHROMBIN TIME PROLONGED [None]
